FAERS Safety Report 4625625-X (Version None)
Quarter: 2005Q1

REPORT INFORMATION
  Report Type: 
  Country: None (occurrence: None)
  Receive Date: 20050330
  Receipt Date: 20050316
  Transmission Date: 20050727
  Serious: Yes (Other)
  Sender: FDA-Public Use
  Company Number: DE_050215336

PATIENT
  Age: 48 Year
  Sex: Female

DRUGS (5)
  1. HUMALOG [Suspect]
     Indication: DIABETES MELLITUS INSULIN-DEPENDENT
     Dates: start: 20030101
  2. FUROSEMIDE [Concomitant]
  3. SIMVASTATIN RATIOPHARM (SIMVASTATIN RATIOPHARM) [Concomitant]
  4. ESOMEPRAZOLE [Concomitant]
  5. ALLOPURINOL [Concomitant]

REACTIONS (5)
  - DRUG INEFFECTIVE [None]
  - GLYCOSYLATED HAEMOGLOBIN INCREASED [None]
  - HYPERGLYCAEMIA [None]
  - HYPERMETROPIA [None]
  - RENAL IMPAIRMENT [None]
